FAERS Safety Report 7627906-4 (Version None)
Quarter: 2011Q3

REPORT INFORMATION
  Report Type: 
  Country: None (occurrence: None)
  Receive Date: 20110721
  Receipt Date: 20081105
  Transmission Date: 20111222
  Serious: Yes (Other)
  Sender: FDA-Public Use
  Company Number: DE-GENENTECH-321672

PATIENT
  Age: 85 Year
  Sex: Female

DRUGS (1)
  1. LUCENTIS [Suspect]
     Indication: AGE-RELATED MACULAR DEGENERATION
     Dosage: UNK
     Route: 031
     Dates: start: 20080505

REACTIONS (10)
  - EYE OEDEMA [None]
  - ARTHROPATHY [None]
  - NASOPHARYNGITIS [None]
  - VITREOUS OPACITIES [None]
  - OEDEMA PERIPHERAL [None]
  - EYE HAEMORRHAGE [None]
  - VISUAL ACUITY REDUCED [None]
  - VISUAL IMPAIRMENT [None]
  - POSTERIOR CAPSULE OPACIFICATION [None]
  - DEPOSIT EYE [None]
